FAERS Safety Report 10440901 (Version 2)
Quarter: 2014Q3

REPORT INFORMATION
  Report Type: Spontaneous
  Country: IT (occurrence: IT)
  Receive Date: 20140909
  Receipt Date: 20140916
  Transmission Date: 20150326
  Serious: Yes (Other)
  Sender: FDA-Public Use
  Company Number: IT-JNJFOC-20140900023

PATIENT

DRUGS (3)
  1. DOXORUBICIN [Suspect]
     Active Substance: DOXORUBICIN
     Indication: PLEURAL MESOTHELIOMA MALIGNANT
     Route: 065
  2. DOXORUBICIN HYDROCHLORIDE. [Suspect]
     Active Substance: DOXORUBICIN HYDROCHLORIDE
     Indication: PLEURAL MESOTHELIOMA MALIGNANT
     Route: 042
  3. RANPIRNASE [Suspect]
     Active Substance: RANPIRNASE
     Indication: PLEURAL MESOTHELIOMA MALIGNANT
     Route: 065

REACTIONS (7)
  - Myalgia [Unknown]
  - Arthralgia [Unknown]
  - Nausea [Unknown]
  - Neutropenia [Unknown]
  - Off label use [Unknown]
  - Neuropathy peripheral [Unknown]
  - Oedema peripheral [Unknown]
